FAERS Safety Report 8292263-X (Version None)
Quarter: 2012Q2

REPORT INFORMATION
  Report Type: 
  Country: None (occurrence: None)
  Receive Date: 20120417
  Receipt Date: 20120405
  Transmission Date: 20120825
  Serious: Yes (Life-Threatening, Hospitalization)
  Sender: FDA-Public Use
  Company Number: KR-ALLERGAN-1115148US

PATIENT
  Age: 61 Year
  Sex: Male
  Weight: 65 kg

DRUGS (2)
  1. PROMAG [Concomitant]
     Indication: EPILEPSY
     Dosage: 500 MG, QD
     Route: 048
  2. BIMATOPROST AND TIMOLOL MALEATE [Suspect]
     Indication: OPEN ANGLE GLAUCOMA
     Dosage: 1 GTT, QD
     Route: 047
     Dates: start: 20111019

REACTIONS (2)
  - SPINAL CORD COMPRESSION [None]
  - LUNG CANCER METASTATIC [None]
